FAERS Safety Report 18146596 (Version 1)
Quarter: 2020Q3

REPORT INFORMATION
  Report Type: Spontaneous
  Country: FR (occurrence: FR)
  Receive Date: 20200813
  Receipt Date: 20200813
  Transmission Date: 20201103
  Serious: Yes (Death)
  Sender: FDA-Public Use
  Company Number: FR-ABBVIE-20K-056-3524365-00

PATIENT
  Age: 70 Year
  Sex: Male

DRUGS (1)
  1. HUMIRA [Suspect]
     Active Substance: ADALIMUMAB
     Indication: PSORIASIS
     Dosage: PUIS 40MG TOUTES LES 2 SEMAINES
     Route: 058
     Dates: start: 20170519

REACTIONS (1)
  - Death [Fatal]

NARRATIVE: CASE EVENT DATE: 20180111
